FAERS Safety Report 8431640-0 (Version None)
Quarter: 2012Q2

REPORT INFORMATION
  Report Type: 
  Country: None (occurrence: None)
  Receive Date: 20120613
  Receipt Date: 20111103
  Transmission Date: 20120825
  Serious: No
  Sender: FDA-Public Use
  Company Number: US-GLAXOSMITHKLINE-A0951878A

PATIENT
  Age: 62 Year
  Sex: Female

DRUGS (2)
  1. UNKNOWN [Concomitant]
  2. TREXIMET [Suspect]
     Indication: MIGRAINE
     Dosage: 85MG SINGLE DOSE
     Route: 048
     Dates: start: 20111031, end: 20111031

REACTIONS (1)
  - SWOLLEN TONGUE [None]
